FAERS Safety Report 12314118 (Version 5)
Quarter: 2016Q2

REPORT INFORMATION
  Report Type: Spontaneous
  Country: US (occurrence: US)
  Receive Date: 20160428
  Receipt Date: 20160613
  Transmission Date: 20160815
  Serious: Yes (Hospitalization)
  Sender: FDA-Public Use
  Company Number: US-ACTELION PHARMACEUTICALS US, INC.-A-US2016-135281

PATIENT
  Age: 43 Year
  Sex: Male

DRUGS (2)
  1. VENTAVIS [Suspect]
     Active Substance: ILOPROST
     Indication: PULMONARY HYPERTENSION
     Dosage: 5 MCG, 6 TO 9 X/DAILY
     Route: 055
     Dates: start: 20160409, end: 20160424
  2. VENTAVIS [Suspect]
     Active Substance: ILOPROST
     Dosage: 2.5 MCG, 6 TO 9X/DAILY
     Route: 055

REACTIONS (7)
  - Chest discomfort [Unknown]
  - Lung transplant [Unknown]
  - Ventilation perfusion mismatch [Unknown]
  - Dyspnoea [Unknown]
  - Irritability [Unknown]
  - Dyspepsia [Unknown]
  - Chest pain [Unknown]
